FAERS Safety Report 7454151-8 (Version None)
Quarter: 2011Q2

REPORT INFORMATION
  Report Type: 
  Country: None (occurrence: None)
  Receive Date: 20110503
  Receipt Date: 20110425
  Transmission Date: 20111010
  Serious: No
  Sender: FDA-Public Use
  Company Number: US-BIOGENIDEC-2011BI015650

PATIENT
  Age: 56 Year
  Sex: Female

DRUGS (1)
  1. TYSABRI [Suspect]
     Indication: MULTIPLE SCLEROSIS
     Route: 042
     Dates: start: 20101019

REACTIONS (5)
  - MIGRAINE [None]
  - DYSPEPSIA [None]
  - MEMORY IMPAIRMENT [None]
  - GASTROINTESTINAL VIRAL INFECTION [None]
  - MYALGIA [None]
